FAERS Safety Report 14993078 (Version 2)
Quarter: 2019Q3

REPORT INFORMATION
  Report Type: Report from Study
  Country: US (occurrence: US)
  Receive Date: 20180610
  Receipt Date: 20190724
  Transmission Date: 20191004
  Serious: Yes (Other)
  Sender: FDA-Public Use
  Company Number: US-INCYTE CORPORATION-2018IN004712

PATIENT

DRUGS (2)
  1. JAKAFI [Suspect]
     Active Substance: RUXOLITINIB
     Indication: POLYCYTHAEMIA VERA
     Dosage: 10 MG, QD (SUNDAY, MONDAY, WEDNESDAY, FRIDAY)
     Route: 048
  2. JAKAFI [Suspect]
     Active Substance: RUXOLITINIB
     Dosage: 5 MG, QD (TUESDAY, THURSDAY, AND SATURDAY)
     Route: 048

REACTIONS (3)
  - Basal cell carcinoma [Unknown]
  - Inappropriate schedule of product administration [Unknown]
  - Nasopharyngitis [Unknown]
